FAERS Safety Report 19521716 (Version 2)
Quarter: 2022Q2

REPORT INFORMATION
  Report Type: Spontaneous
  Country: ES (occurrence: ES)
  Receive Date: 20210712
  Receipt Date: 20220621
  Transmission Date: 20220721
  Serious: Yes (Other)
  Sender: FDA-Public Use
  Company Number: None

PATIENT
  Age: 70 Year
  Sex: Male

DRUGS (1)
  1. INLYTA [Suspect]
     Active Substance: AXITINIB
     Indication: Rectal cancer
     Dosage: 5 MG, 2X/DAY (5 MG EVERY 12 HOURS)
     Route: 048
     Dates: start: 20210521

REACTIONS (3)
  - Aphonia [Recovering/Resolving]
  - Mucosal inflammation [Recovering/Resolving]
  - Off label use [Unknown]

NARRATIVE: CASE EVENT DATE: 20210521
